FAERS Safety Report 9861433 (Version 2)
Quarter: 2014Q1

REPORT INFORMATION
  Report Type: Spontaneous
  Country: US (occurrence: US)
  Receive Date: 20140203
  Receipt Date: 20140326
  Transmission Date: 20141002
  Serious: Yes (Hospitalization)
  Sender: FDA-Public Use
  Company Number: US-BIOGENIDEC-2014BI008129

PATIENT
  Age: 53 Year
  Sex: Male
  Weight: 92 kg

DRUGS (7)
  1. TECFIDERA [Suspect]
     Indication: MULTIPLE SCLEROSIS
     Route: 048
     Dates: start: 20131230, end: 20140105
  2. TECFIDERA [Suspect]
     Indication: MULTIPLE SCLEROSIS
     Route: 048
     Dates: start: 20140106, end: 201401
  3. BACLOFEN [Concomitant]
     Route: 048
     Dates: start: 20131114
  4. CITALOPRAM [Concomitant]
     Route: 048
     Dates: start: 20131209
  5. GOODY POWDERS [Concomitant]
  6. PROPRANOLOL [Concomitant]
     Route: 048
     Dates: start: 20131209
  7. VITAMIN D [Concomitant]
     Route: 048

REACTIONS (6)
  - Abdominal pain [Not Recovered/Not Resolved]
  - Pyrexia [Not Recovered/Not Resolved]
  - Diarrhoea [Recovered/Resolved]
  - Dehydration [Recovered/Resolved]
  - Abdominal discomfort [Recovered/Resolved]
  - Drug ineffective [Recovered/Resolved]
